FAERS Safety Report 8956178 (Version 6)
Quarter: 2014Q2

REPORT INFORMATION
  Report Type: Spontaneous
  Country: US (occurrence: US)
  Receive Date: 20121210
  Receipt Date: 20140625
  Transmission Date: 20141212
  Serious: Yes (Hospitalization, Disabling, Other)
  Sender: FDA-Public Use
  Company Number: US-009507513-1205USA00983

PATIENT
  Sex: Female
  Weight: 64.5 kg

DRUGS (5)
  1. FOSAMAX [Suspect]
     Indication: OSTEOPENIA
     Dosage: 70 MG, QW
     Route: 048
     Dates: start: 1998, end: 2008
  2. FOSAMAX [Suspect]
     Indication: OSTEOPOROSIS
  3. FOSAMAX PLUS D [Suspect]
     Indication: OSTEOPENIA
     Route: 048
     Dates: start: 1998, end: 2008
  4. FOSAMAX [Suspect]
     Indication: OSTEOPENIA
     Dosage: 70 MG, UNK
     Route: 048
     Dates: start: 1998, end: 2008
  5. ACTONEL [Suspect]
     Route: 048
     Dates: start: 1998, end: 2008

REACTIONS (49)
  - Femur fracture [Not Recovered/Not Resolved]
  - Femur fracture [Recovered/Resolved]
  - Intramedullary rod insertion [Recovered/Resolved]
  - Medical device complication [Unknown]
  - Removal of internal fixation [Unknown]
  - Open reduction of fracture [Unknown]
  - Fracture nonunion [Unknown]
  - Intramedullary rod insertion [Unknown]
  - Open reduction of fracture [Unknown]
  - Incisional drainage [Unknown]
  - Knee arthroplasty [Unknown]
  - Hip arthroplasty [Unknown]
  - Hip arthroplasty [Unknown]
  - Rectocele repair [Unknown]
  - Bone density decreased [Not Recovered/Not Resolved]
  - Surgery [Unknown]
  - Cholecystectomy [Unknown]
  - Femur fracture [Unknown]
  - Tooth extraction [Unknown]
  - Dental caries [Unknown]
  - Wound infection staphylococcal [Unknown]
  - Spinal disorder [Unknown]
  - Intervertebral disc protrusion [Unknown]
  - Spinal column stenosis [Unknown]
  - Intervertebral disc degeneration [Unknown]
  - Exostosis [Unknown]
  - Vaginal prolapse [Unknown]
  - Rectocele [Unknown]
  - Stress urinary incontinence [Unknown]
  - Enterocele [Unknown]
  - Sciatica [Unknown]
  - Scoliosis [Unknown]
  - Haemorrhagic anaemia [Unknown]
  - Pain [Not Recovered/Not Resolved]
  - Cystitis [Unknown]
  - Osteomyelitis [Unknown]
  - Lower limb fracture [Unknown]
  - General physical health deterioration [Unknown]
  - Hypercholesterolaemia [Unknown]
  - Appendicectomy [Unknown]
  - Adenotonsillectomy [Unknown]
  - Oophorectomy [Unknown]
  - Osteoarthritis [Unknown]
  - Cataract operation [Unknown]
  - Drug ineffective [Unknown]
  - Treatment failure [Unknown]
  - Arthralgia [Unknown]
  - Constipation [Not Recovered/Not Resolved]
  - Drug ineffective [Unknown]
